FAERS Safety Report 12287203 (Version 2)
Quarter: 2019Q4

REPORT INFORMATION
  Report Type: Spontaneous
  Country: US (occurrence: US)
  Receive Date: 20160420
  Receipt Date: 20191015
  Transmission Date: 20200122
  Serious: Yes (Other)
  Sender: FDA-Public Use
  Company Number: US-PFIZER INC-2016221205

PATIENT
  Age: 21 Year
  Sex: Male
  Weight: 79 kg

DRUGS (4)
  1. GEODON [Suspect]
     Active Substance: ZIPRASIDONE HYDROCHLORIDE\ZIPRASIDONE MESYLATE
     Indication: SCHIZOAFFECTIVE DISORDER
     Dosage: UNK
     Route: 048
     Dates: start: 2016, end: 2016
  2. GEODON [Suspect]
     Active Substance: ZIPRASIDONE HYDROCHLORIDE\ZIPRASIDONE MESYLATE
     Dosage: 60 MG, 2X/DAY
     Route: 048
     Dates: start: 2016
  3. GEODON [Suspect]
     Active Substance: ZIPRASIDONE HYDROCHLORIDE\ZIPRASIDONE MESYLATE
     Dosage: 100 MG, UNK
     Route: 048
     Dates: start: 2016, end: 2016
  4. DEPAKOTE [Suspect]
     Active Substance: DIVALPROEX SODIUM
     Dosage: IN THE MORNING
     Dates: end: 2016

REACTIONS (5)
  - Restless legs syndrome [Unknown]
  - Mania [Unknown]
  - Homicidal ideation [Unknown]
  - Aggression [Unknown]
  - Akathisia [Unknown]

NARRATIVE: CASE EVENT DATE: 2016
